FAERS Safety Report 6105733-7 (Version None)
Quarter: 2009Q1

REPORT INFORMATION
  Report Type: 
  Country: None (occurrence: None)
  Receive Date: 20090304
  Receipt Date: 20090304
  Transmission Date: 20090719
  Serious: Yes (Hospitalization)
  Sender: FDA-Public Use
  Company Number: None

PATIENT
  Sex: Male
  Weight: 90.2658 kg

DRUGS (13)
  1. PEMETREXED [Suspect]
     Indication: NON-SMALL CELL LUNG CANCER METASTATIC
     Dosage: 840MG/M2
     Dates: start: 20090123
  2. PEMETREXED [Suspect]
     Indication: NON-SMALL CELL LUNG CANCER METASTATIC
     Dosage: 840MG/M2
     Dates: start: 20090206
  3. PEMETREXED [Suspect]
     Indication: NON-SMALL CELL LUNG CANCER METASTATIC
     Dosage: 840MG/M2
     Dates: start: 20090220
  4. GEMCITABINE HCL [Suspect]
     Indication: NON-SMALL CELL LUNG CANCER METASTATIC
     Dosage: 2520MG/M2
     Dates: start: 20090123
  5. GEMCITABINE HCL [Suspect]
     Indication: NON-SMALL CELL LUNG CANCER METASTATIC
     Dosage: 2520MG/M2
     Dates: start: 20090206
  6. GEMCITABINE HCL [Suspect]
     Indication: NON-SMALL CELL LUNG CANCER METASTATIC
     Dosage: 2520MG/M2
     Dates: start: 20090220
  7. COMPAZINE [Concomitant]
  8. DECADRON [Concomitant]
  9. FOLIC ACID [Concomitant]
  10. PRILOSEC [Concomitant]
  11. BEVACIZUMAB [Suspect]
     Indication: NON-SMALL CELL LUNG CANCER METASTATIC
     Dosage: 900MG
     Dates: start: 20090123
  12. BEVACIZUMAB [Suspect]
     Indication: NON-SMALL CELL LUNG CANCER METASTATIC
     Dosage: 900MG
     Dates: start: 20090206
  13. BEVACIZUMAB [Suspect]
     Indication: NON-SMALL CELL LUNG CANCER METASTATIC
     Dosage: 900MG
     Dates: start: 20090220

REACTIONS (5)
  - EAR PAIN [None]
  - FEBRILE NEUTROPENIA [None]
  - HYPOTENSION [None]
  - OROPHARYNGEAL PAIN [None]
  - TACHYCARDIA [None]
